FAERS Safety Report 16994222 (Version 1)
Quarter: 2019Q4

REPORT INFORMATION
  Report Type: Spontaneous
  Country: US (occurrence: US)
  Receive Date: 20191105
  Receipt Date: 20191105
  Transmission Date: 20200122
  Serious: No
  Sender: FDA-Public Use
  Company Number: US-BEH-2019108854

PATIENT
  Age: 58 Year
  Sex: Female

DRUGS (1)
  1. HIZENTRA [Suspect]
     Active Substance: HUMAN IMMUNOGLOBULIN G
     Indication: CHRONIC INFLAMMATORY DEMYELINATING POLYRADICULONEUROPATHY
     Dosage: UNK, TOT (THIRD INFUSION)
     Route: 065
     Dates: start: 20191028, end: 20191028

REACTIONS (2)
  - Infusion site erythema [Unknown]
  - Rash [Unknown]

NARRATIVE: CASE EVENT DATE: 201910
